FAERS Safety Report 11558480 (Version 1)
Quarter: 2015Q3

REPORT INFORMATION
  Report Type: Spontaneous
  Country: US (occurrence: None)
  Receive Date: 20150925
  Receipt Date: 20150925
  Transmission Date: 20151125
  Serious: Yes (Other)
  Sender: FDA-Public Use
  Company Number: None

PATIENT
  Age: 21 Year
  Sex: Female
  Weight: 70.31 kg

DRUGS (32)
  1. JUTRIAN [Concomitant]
  2. FOOD GRADE H202 + SUPPLEMENTS WITH COLLOIDAL SILVER AND GOLD [Concomitant]
  3. ZYPAN [Concomitant]
  4. DIAZEPAM. [Concomitant]
     Active Substance: DIAZEPAM
  5. ETODOLAC. [Concomitant]
     Active Substance: ETODOLAC
  6. GLUCOSAMINE CHONDROITIN [Concomitant]
     Active Substance: CHONDROITIN SULFATE (BOVINE)\GLUCOSAMINE HYDROCHLORIDE
  7. CITRUS CALCIUM+D [Concomitant]
  8. MORPHINE SULFATE EXTENDED-RELEASE [Suspect]
     Active Substance: MORPHINE SULFATE
     Indication: PAIN
     Dosage: 1 PILL
     Route: 048
     Dates: start: 20020101
  9. MSIR [Suspect]
     Active Substance: MORPHINE SULFATE
     Indication: BREAKTHROUGH PAIN
     Dosage: 1 AND 1/2 PILLS
     Route: 048
     Dates: start: 20000101
  10. HYDROOXYZINE HCL [Concomitant]
  11. ONDANSETRON [Concomitant]
     Active Substance: ONDANSETRON
  12. BIO-FREEZE [Concomitant]
  13. SERTRALINE HCL [Concomitant]
     Active Substance: SERTRALINE HYDROCHLORIDE
  14. POTASSIUM GLUCONATE STRESSTABS WITH ESTER-C AND ZINC [Concomitant]
  15. VITAMIN B COMPLEX [Concomitant]
     Active Substance: CYANOCOBALAMIN\DEXPANTHENOL\NIACINAMIDE\PYRIDOXINE HYDROCHLORIDE\RIBOFLAVIN 5^-PHOSPHATE SODIUM\THIAMINE HYDROCHLORIDE\VITAMIN B COMPLEX
  16. FOLIC ACID. [Concomitant]
     Active Substance: FOLIC ACID
  17. QUETIAPINE FUMARATE. [Concomitant]
     Active Substance: QUETIAPINE FUMARATE
  18. METOCLOPRAMIDE HCL [Concomitant]
     Active Substance: METOCLOPRAMIDE HYDROCHLORIDE
  19. PREVACID SOLUTAB [Concomitant]
     Active Substance: LANSOPRAZOLE
  20. PHENADOZ [Concomitant]
     Active Substance: PROMETHAZINE HYDROCHLORIDE
  21. KNOX ORIGINAL GELATINE [Concomitant]
  22. CATAPLEX B [Concomitant]
  23. LIGAPLEX II [Concomitant]
  24. SENTRY MULTIVITAMIN + MULTIMINERAL SUPPLEMENT [Concomitant]
  25. STRESS FORMULA WITH ZINC [Concomitant]
  26. WALKER SEAT [Suspect]
     Active Substance: DEVICE
  27. METRONIDAZOLE. [Concomitant]
     Active Substance: METRONIDAZOLE
  28. LIDODERM 5 [Concomitant]
     Active Substance: LIDOCAINE
  29. COENZYME Q10 [Concomitant]
     Active Substance: UBIDECARENONE
  30. B SUPER MAXI COMPLEX [Concomitant]
  31. C+E PLUS COMPLETE [Concomitant]
  32. CANE [Concomitant]

REACTIONS (1)
  - Drug screen positive [None]

NARRATIVE: CASE EVENT DATE: 20150903
